FAERS Safety Report 12469061 (Version 7)
Quarter: 2016Q3

REPORT INFORMATION
  Report Type: Spontaneous
  Country: IT (occurrence: IT)
  Receive Date: 20160615
  Receipt Date: 20160909
  Transmission Date: 20161109
  Serious: Yes (Other)
  Sender: FDA-Public Use
  Company Number: IT-PURDUE PHARMA-GBR-2016-0036949

PATIENT
  Age: 86 Year
  Sex: Female

DRUGS (13)
  1. OXYCODONE HYDROCHLORIDE. [Suspect]
     Active Substance: OXYCODONE HYDROCHLORIDE
     Indication: BACK PAIN
  2. NIMESULID [Suspect]
     Active Substance: NIMESULIDE
     Indication: BACK PAIN
  3. OXYCODONE HYDROCHLORIDE. [Suspect]
     Active Substance: OXYCODONE HYDROCHLORIDE
     Indication: SPINAL PAIN
     Route: 065
  4. TRAMADOL HCL [Suspect]
     Active Substance: TRAMADOL HYDROCHLORIDE
     Indication: SPINAL PAIN
     Route: 065
  5. NIMESULID [Suspect]
     Active Substance: NIMESULIDE
     Indication: SPINAL PAIN
     Route: 065
  6. ETORICOXIB [Suspect]
     Active Substance: ETORICOXIB
     Indication: SPINAL PAIN
     Route: 065
  7. HYDROMORPHONE [Concomitant]
     Active Substance: HYDROMORPHONE
  8. PREGABALIN. [Concomitant]
     Active Substance: PREGABALIN
  9. DICLOFENAC SODIUM. [Suspect]
     Active Substance: DICLOFENAC SODIUM
     Indication: BACK PAIN
  10. DULOXETINE. [Concomitant]
     Active Substance: DULOXETINE
  11. TRAMADOL HCL [Suspect]
     Active Substance: TRAMADOL HYDROCHLORIDE
     Indication: BACK PAIN
  12. ETORICOXIB [Suspect]
     Active Substance: ETORICOXIB
     Indication: BACK PAIN
  13. DICLOFENAC SODIUM. [Suspect]
     Active Substance: DICLOFENAC SODIUM
     Indication: SPINAL PAIN
     Route: 065

REACTIONS (5)
  - Blood creatinine increased [Recovered/Resolved]
  - Iron deficiency anaemia [Recovered/Resolved]
  - Drug abuse [Unknown]
  - Blood urea increased [Recovered/Resolved]
  - Disorientation [Unknown]
